FAERS Safety Report 10362869 (Version 5)
Quarter: 2014Q4

REPORT INFORMATION
  Report Type: Spontaneous
  Country: US (occurrence: US)
  Receive Date: 20140805
  Receipt Date: 20141125
  Transmission Date: 20150528
  Serious: Yes (Hospitalization, Other)
  Sender: FDA-Public Use
  Company Number: US-PFIZER INC-2014215461

PATIENT
  Age: 73 Year
  Sex: Male
  Weight: 101 kg

DRUGS (15)
  1. ATARAX [Concomitant]
     Active Substance: HYDROXYZINE\HYDROXYZINE HYDROCHLORIDE
     Dosage: 1 DF, DAILY (25MG TABLET: 1 DAILY)
  2. ZYVOX [Suspect]
     Active Substance: LINEZOLID
     Indication: BACTERIAL INFECTION
     Dosage: 600 MG, 2X/DAY (EVERY 12 HRS)
     Route: 048
     Dates: start: 20131212, end: 201401
  3. XALATAN [Concomitant]
     Active Substance: LATANOPROST
     Dosage: UNK, 1X/DAY (1 DROP EACH EYE PM)
  4. VITAMIN D3 [Concomitant]
     Active Substance: CHOLECALCIFEROL
     Dosage: 2 DF, DAILY (1,000 UNIT CAPSULE: 2 DAILY)
  5. LOTREL [Concomitant]
     Active Substance: AMLODIPINE BESYLATE\BENAZEPRIL HYDROCHLORIDE
     Dosage: 1 DF, DAILY (10-20 MG PER CAPSULE: 1 DAILY)
  6. FLOMAX RELIEF [Concomitant]
     Dosage: 1 DF, DAILY (0.4 MG CP24: 1 DAILY)
  7. TENORMIN [Concomitant]
     Active Substance: ATENOLOL
     Dosage: 1 DF, DAILY (100 MG TABLET: 1 DAILY)
  8. GLUCOPHAGE [Concomitant]
     Active Substance: METFORMIN HYDROCHLORIDE
     Dosage: 2 DF, DAILY (500 MG TABLET: 2 DAILY)
  9. ASPIRIN. [Concomitant]
     Active Substance: ASPIRIN
     Dosage: 1 DF, DAILY (325 MG TABLET: 1 DAILY)
  10. HYDRODIURIL [Concomitant]
     Active Substance: HYDROCHLOROTHIAZIDE
     Dosage: 1 DF, DAILY (25 MG TABLET: 1 DAILY)
  11. VITAMIN C [Concomitant]
     Active Substance: ASCORBIC ACID
     Dosage: 1 DF, DAILY (500 MG: 1 DAILY)
  12. LACTOBACILLUS ACIDOPHILUS [Concomitant]
     Active Substance: LACTOBACILLUS ACIDOPHILUS
     Indication: PROPHYLAXIS
     Dosage: UNK
  13. ALEVE [Concomitant]
     Active Substance: NAPROXEN SODIUM
     Dosage: 1 DF, AS NEEDED (220 MG TABLET: 1 AS NEEDED)
  14. VITAMIN D [Concomitant]
     Active Substance: CHOLECALCIFEROL
     Dosage: UNK
  15. TRUSOPT [Concomitant]
     Active Substance: DORZOLAMIDE HYDROCHLORIDE
     Dosage: 2 GTT, 2X/DAY (1 -DROP EACH EYE AM+ PM)

REACTIONS (10)
  - Blood count abnormal [Recovered/Resolved]
  - Drug ineffective [Recovered/Resolved]
  - Hallucination, visual [Recovered/Resolved]
  - Local swelling [Unknown]
  - Confusional state [Recovered/Resolved]
  - Musculoskeletal disorder [Recovered/Resolved]
  - Erythema [Recovered/Resolved]
  - Gait disturbance [Not Recovered/Not Resolved]
  - Wound decomposition [Recovered/Resolved]
  - Blood iron decreased [Recovered/Resolved]

NARRATIVE: CASE EVENT DATE: 201312
